FAERS Safety Report 4539226-5 (Version None)
Quarter: 2004Q4

REPORT INFORMATION
  Report Type: 
  Country: None (occurrence: None)
  Receive Date: 20041222
  Receipt Date: 20041209
  Transmission Date: 20050328
  Serious: Yes (Hospitalization)
  Sender: FDA-Public Use
  Company Number: 310001M04POL

PATIENT
  Age: 29 Year
  Sex: Female

DRUGS (4)
  1. GONAL-F [Suspect]
     Indication: DRUG THERAPY
     Dosage: 150 IU, 1 IN 1 DAYS, SUBCUTANEOUS
     Route: 058
     Dates: start: 20041123, end: 20041201
  2. TRIPTORELIN [Concomitant]
  3. AMLODIPINE [Concomitant]
  4. ATENOLOL HYPERTENSION [Concomitant]

REACTIONS (3)
  - COAGULOPATHY [None]
  - HAEMORRHAGIC DIATHESIS [None]
  - INJECTION SITE HAEMORRHAGE [None]
